FAERS Safety Report 4689638-4 (Version None)
Quarter: 2005Q2

REPORT INFORMATION
  Report Type: 
  Country: None (occurrence: None)
  Receive Date: 20050608
  Receipt Date: 20050413
  Transmission Date: 20051028
  Serious: No
  Sender: FDA-Public Use
  Company Number: 2005-BP-06082BP

PATIENT
  Age: 69 Year
  Sex: Male

DRUGS (11)
  1. SPIRIVA [Suspect]
     Indication: CHRONIC OBSTRUCTIVE PULMONARY DISEASE
     Dosage: 18 MCG (18 MCG, 1 PUGG QD), IH
     Route: 055
     Dates: start: 20050331, end: 20050410
  2. COMBIVENT(COMBIVENT/GFR/) [Concomitant]
  3. SALINE(SODIUM CHLORIDE) [Concomitant]
  4. MONOPRIL [Concomitant]
  5. HYDROCHLOROTHIAZIDE [Concomitant]
  6. FLOMAX [Concomitant]
  7. DEPAKOTE [Concomitant]
  8. WELLBUTRIN [Concomitant]
  9. EFFEXOR [Concomitant]
  10. TRAZADONE [Concomitant]
  11. LORAZEPAM [Concomitant]

REACTIONS (1)
  - RASH GENERALISED [None]
